FAERS Safety Report 7809656-4 (Version None)
Quarter: 2011Q4

REPORT INFORMATION
  Report Type: 
  Country: None (occurrence: None)
  Receive Date: 20111012
  Receipt Date: 20111007
  Transmission Date: 20120403
  Serious: Yes (Hospitalization)
  Sender: FDA-Public Use
  Company Number: US-GLAXOSMITHKLINE-A0791873A

PATIENT
  Age: 71 Year
  Sex: Male

DRUGS (8)
  1. DILTIAZEM HCL [Concomitant]
  2. FUROSEMIDE [Concomitant]
  3. METFORMIN HYDROCHLORIDE [Concomitant]
  4. ACIPHEX [Concomitant]
  5. ASPIRIN [Concomitant]
  6. AVANDIA [Suspect]
     Indication: DIABETES MELLITUS
     Dosage: 8MG PER DAY
     Route: 048
     Dates: start: 20041001, end: 20070301
  7. INSULIN NOVOLIN [Concomitant]
  8. ZOCOR [Concomitant]

REACTIONS (3)
  - ACUTE MYOCARDIAL INFARCTION [None]
  - CARDIAC DISORDER [None]
  - CARDIOGENIC SHOCK [None]
